FAERS Safety Report 7965058-1 (Version None)
Quarter: 2011Q4

REPORT INFORMATION
  Report Type: 
  Country: None (occurrence: None)
  Receive Date: 20111208
  Receipt Date: 20111202
  Transmission Date: 20120403
  Serious: Yes (Hospitalization)
  Sender: FDA-Public Use
  Company Number: CA-SANOFI-AVENTIS-2011SA079913

PATIENT
  Age: 69 Year
  Sex: Male
  Weight: 58 kg

DRUGS (12)
  1. LACTULOSE [Concomitant]
     Dates: start: 20111025
  2. BEZAFIBRATE [Concomitant]
  3. NABILONE [Concomitant]
     Dates: start: 20111028
  4. DOCETAXEL [Suspect]
     Indication: PROSTATE CANCER
     Route: 041
     Dates: start: 20111024, end: 20111024
  5. INVESTIGATIONAL DRUG [Suspect]
     Indication: PROSTATE CANCER
     Route: 042
     Dates: start: 20111024, end: 20111024
  6. TINZAPARIN [Concomitant]
     Dates: start: 20101201
  7. RANITIDINE [Concomitant]
     Dates: start: 20111115
  8. PROCHLORPERAZINE [Concomitant]
     Dates: start: 20111115
  9. DEXAMETHASONE [Concomitant]
     Dates: start: 20111023
  10. SENNA [Concomitant]
     Dates: start: 20111014
  11. LEVOTHYROXINE SODIUM [Concomitant]
  12. ZOFRAN [Concomitant]
     Dates: start: 20111024

REACTIONS (1)
  - AORTITIS [None]
